FAERS Safety Report 8960149 (Version 1)
Quarter: 2012Q4

REPORT INFORMATION
  Report Type: 
  Country: FR (occurrence: FR)
  Receive Date: 20121212
  Receipt Date: 20121212
  Transmission Date: 20130627
  Serious: Yes (Hospitalization, Other)
  Sender: FDA-Public Use
  Company Number: PHHY2012FR112840

PATIENT
  Age: 82 Year
  Sex: Male

DRUGS (12)
  1. GLIVEC [Suspect]
     Indication: CHRONIC MYELOID LEUKAEMIA
     Dosage: 400 mg, QD
     Route: 048
     Dates: start: 201204, end: 20121102
  2. INEXIUM//ESOMEPRAZOLE MAGNESIUM [Concomitant]
  3. LEXOMIL [Concomitant]
  4. ZOLOFT [Concomitant]
  5. NOCTAMID [Concomitant]
  6. ATACAND [Concomitant]
  7. ALPRAZOLAM [Concomitant]
  8. TARDYFERON [Concomitant]
  9. LASILIX [Concomitant]
  10. ZYLORIC [Concomitant]
  11. KEPPRA [Concomitant]
  12. FORLAX [Concomitant]

REACTIONS (5)
  - Pleurisy [Not Recovered/Not Resolved]
  - Aortic valve incompetence [Unknown]
  - Mitral valve incompetence [Unknown]
  - General physical health deterioration [Unknown]
  - Dyspnoea [Unknown]
